FAERS Safety Report 5103676-9 (Version None)
Quarter: 2006Q3

REPORT INFORMATION
  Report Type: 
  Country: None (occurrence: None)
  Receive Date: 20060731
  Receipt Date: 20050818
  Transmission Date: 20061208
  Serious: Yes (Hospitalization)
  Sender: FDA-Public Use
  Company Number: US-JNJFOC-20050804595

PATIENT
  Age: 21 Year
  Sex: Male

DRUGS (4)
  1. RISPERDAL CONSTA [Suspect]
     Indication: SCHIZOAFFECTIVE DISORDER
     Dosage: 50 MG, 1 IN 2 WEEK, INTRAMUSCULAR
     Route: 030
     Dates: start: 20040422
  2. RISPERDAL [Suspect]
     Indication: SCHIZOAFFECTIVE DISORDER
     Dosage: 4 MG, 2 IN 1 DAY, ORAL
     Route: 048
  3. ABILIFY [Concomitant]
  4. THORAZINE (CHLORPOMAZINE HYDROCHLORIDE) [Concomitant]

REACTIONS (1)
  - PSYCHOTIC DISORDER [None]
